FAERS Safety Report 18887103 (Version 4)
Quarter: 2021Q2

REPORT INFORMATION
  Report Type: Report from Study
  Country: AU (occurrence: AU)
  Receive Date: 20210212
  Receipt Date: 20210624
  Transmission Date: 20210717
  Serious: Yes (Other)
  Sender: FDA-Public Use
  Company Number: AU-EMD SERONO-9184186

PATIENT
  Age: 60 Year
  Sex: Female

DRUGS (3)
  1. MAVENCLAD [Suspect]
     Active Substance: CLADRIBINE
     Dosage: SECOND YEAR THERAPY
  2. MAVENCLAD [Suspect]
     Active Substance: CLADRIBINE
     Dosage: FIRST YEAR SECOND WEEK THERAPY
  3. MAVENCLAD [Suspect]
     Active Substance: CLADRIBINE
     Indication: MULTIPLE SCLEROSIS
     Dosage: FIRST YEAR FIRST WEEK THERAPY
     Dates: start: 20190804, end: 201908

REACTIONS (6)
  - Night sweats [Unknown]
  - Polyarthritis [Unknown]
  - Pyrexia [Unknown]
  - Immune reconstitution inflammatory syndrome [Unknown]
  - Rheumatoid arthritis [Unknown]
  - Chills [Unknown]

NARRATIVE: CASE EVENT DATE: 202008
